FAERS Safety Report 6969563-6 (Version None)
Quarter: 2010Q3

REPORT INFORMATION
  Report Type: 
  Country: None (occurrence: None)
  Receive Date: 20100907
  Receipt Date: 20100907
  Transmission Date: 20110219
  Serious: Yes (Life-Threatening, Other)
  Sender: FDA-Public Use
  Company Number: None

PATIENT
  Age: 28 Year
  Sex: Female
  Weight: 63.5036 kg

DRUGS (2)
  1. YAZ [Suspect]
     Indication: ENDOMETRIOSIS
     Dosage: 1 PILL DAILY THROU 4 WEEK PACK DAILY PO
     Route: 048
     Dates: start: 20090201, end: 20091130
  2. YAZ [Suspect]
     Indication: OVARIAN CYST
     Dosage: 1 PILL DAILY THROU 4 WEEK PACK DAILY PO
     Route: 048
     Dates: start: 20090201, end: 20091130

REACTIONS (3)
  - CHOLELITHIASIS [None]
  - DRUG INEFFECTIVE [None]
  - PRESYNCOPE [None]
